FAERS Safety Report 6640806-1 (Version None)
Quarter: 2010Q1

REPORT INFORMATION
  Report Type: 
  Country: None (occurrence: None)
  Receive Date: 20100318
  Receipt Date: 20100305
  Transmission Date: 20100710
  Serious: Yes (Other)
  Sender: FDA-Public Use
  Company Number: KR-ELI_LILLY_AND_COMPANY-KR201003004249

PATIENT
  Age: 61 Year
  Sex: Female

DRUGS (1)
  1. PEMETREXED [Suspect]
     Indication: LUNG ADENOCARCINOMA

REACTIONS (3)
  - DYSPNOEA [None]
  - LUNG DISORDER [None]
  - LUNG INFILTRATION [None]
